FAERS Safety Report 11463872 (Version 1)
Quarter: 2015Q3

REPORT INFORMATION
  Report Type: Spontaneous
  Country: US (occurrence: US)
  Receive Date: 20150831
  Receipt Date: 20150831
  Transmission Date: 20151125
  Serious: Yes (Other)
  Sender: FDA-Public Use
  Company Number: US-ELI_LILLY_AND_COMPANY-US201105003379

PATIENT
  Age: 37 Year
  Sex: Female

DRUGS (1)
  1. CYMBALTA [Suspect]
     Active Substance: DULOXETINE HYDROCHLORIDE
     Indication: FIBROMYALGIA
     Dosage: 60 MG, QD

REACTIONS (19)
  - Syncope [Unknown]
  - Gait disturbance [Unknown]
  - Agitation [Unknown]
  - Drug ineffective [Unknown]
  - Vision blurred [Unknown]
  - Anxiety [Unknown]
  - Sensory disturbance [Unknown]
  - Balance disorder [Unknown]
  - Feeling abnormal [Unknown]
  - Irritability [Unknown]
  - Eye movement disorder [Unknown]
  - Aggression [Unknown]
  - Disturbance in attention [Unknown]
  - Drug withdrawal syndrome [Unknown]
  - Communication disorder [Unknown]
  - Hypoaesthesia [Unknown]
  - Dizziness [Unknown]
  - Abnormal behaviour [Unknown]
  - Restlessness [Unknown]
